FAERS Safety Report 8201465 (Version 4)
Quarter: 2013Q4

REPORT INFORMATION
  Report Type: Spontaneous
  Country: US (occurrence: US)
  Receive Date: 20111026
  Receipt Date: 20131007
  Transmission Date: 20140711
  Serious: Yes (Death, Life-Threatening, Other)
  Sender: FDA-Public Use
  Company Number: US-RB-033060-11

PATIENT
  Age: 1 Year
  Sex: Male
  Weight: 10.1 kg

DRUGS (1)
  1. SUBOXONE TABLETS [Suspect]
     Indication: ACCIDENTAL EXPOSURE TO PRODUCT BY CHILD
     Dosage: UNKNOWN DOSAGE AND AMOUNT OF ONE INTAKE
     Route: 048
     Dates: start: 20111013, end: 20111013

REACTIONS (8)
  - Accidental exposure to product by child [Fatal]
  - Loss of consciousness [Fatal]
  - Respiratory failure [Fatal]
  - Cardiac arrest [Fatal]
  - Toxicity to various agents [Fatal]
  - Bladder dilatation [Not Recovered/Not Resolved]
  - Bronchopneumonia [Not Recovered/Not Resolved]
  - Pneumonia staphylococcal [Not Recovered/Not Resolved]
